FAERS Safety Report 23522035 (Version 1)
Quarter: 2024Q1

REPORT INFORMATION
  Report Type: Spontaneous
  Country: HR (occurrence: HR)
  Receive Date: 20240214
  Receipt Date: 20240214
  Transmission Date: 20240410
  Serious: Yes (Other)
  Sender: FDA-Public Use
  Company Number: None

PATIENT
  Age: 16 Year
  Sex: Male

DRUGS (3)
  1. IBUPROFEN [Suspect]
     Active Substance: IBUPROFEN
     Indication: Product used for unknown indication
     Dosage: HE DRANK 8G OF IBUPROFEN?ASSUMPTION IBUPROFEN 800 MG
     Route: 048
     Dates: start: 20231029, end: 20231029
  2. NORMABEL [Suspect]
     Active Substance: DIAZEPAM
     Indication: Product used for unknown indication
     Dosage: DRANK 60 TBL NORMABEL?ASSUMPTION NORMABEL 10 MG
     Route: 048
     Dates: start: 20231029, end: 20231029
  3. DIOSMIN\HESPERIDIN [Suspect]
     Active Substance: DIOSMIN\HESPERIDIN
     Dosage: HE DRANK 12TBL OF DETRALEX?1 TABLET = 500 MG OF PURIFIED MICRONIZED MIXTURE OF FLAVONOIDS CONSIST...
     Route: 048
     Dates: start: 20231029, end: 20231029

REACTIONS (3)
  - Suicide attempt [Unknown]
  - Intentional overdose [Unknown]
  - No adverse event [Unknown]

NARRATIVE: CASE EVENT DATE: 20231029
